FAERS Safety Report 13136637 (Version 1)
Quarter: 2017Q1

REPORT INFORMATION
  Report Type: Spontaneous
  Country: DE (occurrence: DE)
  Receive Date: 20170123
  Receipt Date: 20170123
  Transmission Date: 20170428
  Serious: Yes (Other)
  Sender: FDA-Public Use
  Company Number: DE-ROCHE-1882012

PATIENT
  Age: 45 Year
  Sex: Male

DRUGS (11)
  1. RIBAVIRIN. [Suspect]
     Active Substance: RIBAVIRIN
     Indication: CHRONIC HEPATITIS C
     Route: 065
  2. RIBAVIRIN. [Suspect]
     Active Substance: RIBAVIRIN
     Route: 065
     Dates: start: 201509
  3. OMBITASVIR [Concomitant]
     Active Substance: OMBITASVIR
     Indication: CHRONIC HEPATITIS C
     Route: 065
     Dates: start: 201509, end: 201602
  4. SORAFENIB [Concomitant]
     Active Substance: SORAFENIB
     Indication: HEPATOCELLULAR CARCINOMA
     Route: 065
     Dates: start: 201307, end: 201505
  5. PARITAPREVIR [Concomitant]
     Active Substance: PARITAPREVIR
     Indication: CHRONIC HEPATITIS C
     Route: 065
     Dates: start: 201509, end: 201602
  6. PEG-INTERFERON ALFA 2A [Suspect]
     Active Substance: PEGINTERFERON ALFA-2A
     Indication: CHRONIC HEPATITIS C
     Route: 065
  7. GADOLINIUM [Concomitant]
     Active Substance: GADOLINIUM
     Indication: HEPATOCELLULAR CARCINOMA
  8. DASABUVIR [Concomitant]
     Active Substance: DASABUVIR
     Indication: CHRONIC HEPATITIS C
     Route: 065
     Dates: start: 201509, end: 201602
  9. RIBAVIRIN. [Suspect]
     Active Substance: RIBAVIRIN
     Indication: CHRONIC HEPATITIS C
     Route: 065
     Dates: start: 201509
  10. RITONAVIR. [Concomitant]
     Active Substance: RITONAVIR
     Indication: CHRONIC HEPATITIS C
     Route: 065
     Dates: start: 201509, end: 201602
  11. SORAFENIB [Concomitant]
     Active Substance: SORAFENIB
     Indication: HEPATOCELLULAR CARCINOMA
     Route: 065
     Dates: start: 201307, end: 201505

REACTIONS (2)
  - Haematotoxicity [Unknown]
  - Anaemia [Recovered/Resolved]
